FAERS Safety Report 21325035 (Version 2)
Quarter: 2022Q3

REPORT INFORMATION
  Report Type: Spontaneous
  Country: IN (occurrence: IN)
  Receive Date: 20220912
  Receipt Date: 20220921
  Transmission Date: 20221027
  Serious: Yes (Hospitalization, Other)
  Sender: FDA-Public Use
  Company Number: IN-MLMSERVICE-20220830-3759677-1

PATIENT
  Age: 70 Year
  Sex: Female

DRUGS (3)
  1. METHOTREXATE SODIUM [Suspect]
     Active Substance: METHOTREXATE SODIUM
     Indication: Rheumatoid arthritis
     Dosage: 20 MG, WEEKLY (FOR 8 YEARS)
     Dates: start: 2007, end: 201512
  2. HYDROXYCHLOROQUINE [Concomitant]
     Active Substance: HYDROXYCHLOROQUINE
     Indication: Rheumatoid arthritis
     Dosage: 300 MG, 1X/DAY
     Dates: start: 2007
  3. HYDROXYCHLOROQUINE [Concomitant]
     Active Substance: HYDROXYCHLOROQUINE
     Dosage: 200 MG, 1X/DAY
     Dates: start: 2007

REACTIONS (3)
  - Blood creatinine increased [Recovered/Resolved]
  - Hypercalcaemia [Recovered/Resolved]
  - Granulomatous pneumonitis [Recovered/Resolved]

NARRATIVE: CASE EVENT DATE: 20150101
